FAERS Safety Report 7738953-6 (Version None)
Quarter: 2011Q3

REPORT INFORMATION
  Report Type: 
  Country: None (occurrence: None)
  Receive Date: 20110909
  Receipt Date: 20110829
  Transmission Date: 20111222
  Serious: No
  Sender: FDA-Public Use
  Company Number: US-BIOGENIDEC-2011BI028125

PATIENT
  Sex: Male

DRUGS (1)
  1. TYSABRI [Suspect]
     Indication: MULTIPLE SCLEROSIS
     Route: 042
     Dates: start: 20100729

REACTIONS (12)
  - HYPERMETABOLISM [None]
  - EYE MOVEMENT DISORDER [None]
  - BALANCE DISORDER [None]
  - TEMPERATURE INTOLERANCE [None]
  - HYPERACUSIS [None]
  - SYNCOPE [None]
  - LOSS OF CONSCIOUSNESS [None]
  - FALL [None]
  - MEMORY IMPAIRMENT [None]
  - SCOLIOSIS [None]
  - NERVOUS SYSTEM DISORDER [None]
  - VISION BLURRED [None]
